FAERS Safety Report 24195421 (Version 1)
Quarter: 2024Q3

REPORT INFORMATION
  Report Type: Spontaneous
  Country: US (occurrence: None)
  Receive Date: 20240809
  Receipt Date: 20240809
  Transmission Date: 20241017
  Serious: Yes (Other)
  Sender: Public
  Company Number: None

PATIENT
  Age: 75 Year
  Sex: Male
  Weight: 79.83 kg

DRUGS (1)
  1. GENTAMICIN [Suspect]
     Active Substance: GENTAMICIN
     Indication: Aortic valve replacement
     Dosage: FREQUENCY : ONCE;?OTHER ROUTE : IVPB;?
     Route: 050
     Dates: start: 20240808, end: 20240808

REACTIONS (2)
  - Visual impairment [None]
  - Infusion related reaction [None]

NARRATIVE: CASE EVENT DATE: 20240808
